FAERS Safety Report 4305233-0 (Version None)
Quarter: 2004Q1

REPORT INFORMATION
  Report Type: 
  Country: None (occurrence: None)
  Receive Date: 20040226
  Receipt Date: 20030514
  Transmission Date: 20041129
  Serious: Yes (Death)
  Sender: FDA-Public Use
  Company Number: GB-ROCHE-337830

PATIENT
  Age: 31 Year
  Sex: Female

DRUGS (4)
  1. FLUMAZENIL [Suspect]
     Indication: REVERSAL OF SEDATION
     Route: 042
  2. DOTHIEPIN HYDROCHLORIDE [Concomitant]
  3. CHLORDIAZEPOXIDE [Concomitant]
  4. TEMAZEPAM [Concomitant]

REACTIONS (4)
  - BRADYCARDIA [None]
  - CARDIAC ARREST [None]
  - CARDIOTOXICITY [None]
  - STATUS EPILEPTICUS [None]
